FAERS Safety Report 18410924 (Version 2)
Quarter: 2021Q2

REPORT INFORMATION
  Report Type: Spontaneous
  Country: US (occurrence: US)
  Receive Date: 20201021
  Receipt Date: 20210503
  Transmission Date: 20210717
  Serious: Yes (Other)
  Sender: FDA-Public Use
  Company Number: US-PFIZER INC-2020399093

PATIENT
  Age: 25 Year
  Sex: Female

DRUGS (7)
  1. ATRACURIUM BESILATE [Suspect]
     Active Substance: ATRACURIUM BESYLATE
     Indication: NEUROMUSCULAR BLOCKING THERAPY
     Dosage: UNK (INFUSION)(RANGED FROM 7 UG/KG^?1/MIN^?1 TO A MAXIMUM OF 14 UG/KG^?1/MIN^?1)
  2. CYCLOPHOSPHAMIDE. [Concomitant]
     Active Substance: CYCLOPHOSPHAMIDE
     Dosage: 40 MG, DAILY
  3. MORPHINE SULFATE. [Concomitant]
     Active Substance: MORPHINE SULFATE
     Indication: ANALGESIC THERAPY
     Dosage: UNK (INFUSION)
  4. METHYLPREDNISOLONE ACETATE. [Suspect]
     Active Substance: METHYLPREDNISOLONE ACETATE
     Dosage: 750 MG, DAILY (HIGH DOSES)
  5. ETOMIDATE. [Concomitant]
     Active Substance: ETOMIDATE
     Dosage: 10 MG
     Route: 042
  6. VECURONIUM [Concomitant]
     Active Substance: VECURONIUM BROMIDE
     Dosage: 10 MG
  7. MIDAZOLAM. [Concomitant]
     Active Substance: MIDAZOLAM
     Indication: SEDATION
     Dosage: 2 MG (INFUSION)
     Route: 042

REACTIONS (1)
  - Muscular weakness [Recovering/Resolving]
